FAERS Safety Report 9618514 (Version 1)
Quarter: 2013Q4

REPORT INFORMATION
  Report Type: Spontaneous
  Country: US (occurrence: US)
  Receive Date: 20131014
  Receipt Date: 20131014
  Transmission Date: 20140711
  Serious: No
  Sender: FDA-Public Use
  Company Number: US-PFIZER INC-2013290043

PATIENT
  Age: 46 Year
  Sex: Female

DRUGS (1)
  1. ADVIL [Suspect]
     Indication: HEADACHE
     Dosage: UNK, ONCE A DAY
     Route: 048
     Dates: start: 20131004, end: 20131006

REACTIONS (3)
  - Foreign body [Unknown]
  - Dysphagia [Unknown]
  - Discomfort [Unknown]
